FAERS Safety Report 4896927-7 (Version None)
Quarter: 2006Q1

REPORT INFORMATION
  Report Type: 
  Country: None (occurrence: None)
  Receive Date: 20060131
  Receipt Date: 20060103
  Transmission Date: 20060701
  Serious: Yes (Other)
  Sender: FDA-Public Use
  Company Number: US-AMGEN-US163446

PATIENT
  Age: 61 Year
  Sex: Female
  Weight: 112.2 kg

DRUGS (2)
  1. ENBREL [Suspect]
     Indication: PSORIASIS
     Route: 065
     Dates: start: 20050101, end: 20050101
  2. MULTIVITAMIN [Concomitant]
     Route: 065

REACTIONS (4)
  - JOINT EFFUSION [None]
  - METASTATIC MALIGNANT MELANOMA [None]
  - OSTEOARTHRITIS [None]
  - THYROID NEOPLASM [None]
